FAERS Safety Report 6021229-5 (Version None)
Quarter: 2008Q4

REPORT INFORMATION
  Report Type: 
  Country: None (occurrence: None)
  Receive Date: 20081229
  Receipt Date: 20081216
  Transmission Date: 20090506
  Serious: Yes (Death)
  Sender: FDA-Public Use
  Company Number: PH-WYE-H07252908

PATIENT
  Age: 61 Year
  Sex: Male

DRUGS (5)
  1. CORDARONE [Suspect]
     Indication: ATRIAL FIBRILLATION
     Dosage: PATIENT TREATED IRREGULARLY WITH AMIODARONE 200MG DAILY DURING EXACERBATIONS
     Route: 048
  2. PLAVIX [Concomitant]
     Indication: ANTICOAGULANT THERAPY
     Dosage: 75 MG (FREQUENCY UNSPECIFIED)
     Route: 048
  3. OLMESARTAN MEDOXOMIL [Concomitant]
     Indication: HYPERTENSION
     Dosage: 20 MG, FREQUENCY NOT SPECIFIED
     Route: 048
  4. ISOSORBIDE MONONITRATE [Concomitant]
     Indication: HYPERTENSION
     Dosage: 5 MG, FREQUENCY NOT SPECIFIED
     Route: 048
  5. FUROSEMIDE [Concomitant]
     Indication: HYPERTENSION
     Dosage: 80 MG, FREQUENCY NOT SPECIFIED
     Route: 048

REACTIONS (1)
  - CARDIAC FAILURE CONGESTIVE [None]
